FAERS Safety Report 8974623 (Version 2)
Quarter: 2013Q1

REPORT INFORMATION
  Report Type: Spontaneous
  Country: JP (occurrence: JP)
  Receive Date: 20121220
  Receipt Date: 20130204
  Transmission Date: 20140127
  Serious: Yes (Other)
  Sender: FDA-Public Use
  Company Number: JP-009507513-1212JPN006066

PATIENT
  Age: 71 Year
  Sex: Female
  Weight: 56 kg

DRUGS (6)
  1. JANUVIA TABLETS 50MG [Suspect]
     Indication: TYPE 2 DIABETES MELLITUS
     Dosage: 50 MG, QD
     Route: 048
     Dates: start: 20111121, end: 20121102
  2. DIGOXIN [Concomitant]
     Indication: ATRIAL FIBRILLATION
     Dosage: 0.25 MG, QD
     Route: 048
     Dates: start: 20090209
  3. BLOPRESS [Concomitant]
     Indication: HYPERTENSION
     Dosage: 4 MG, QD
     Route: 048
     Dates: start: 20110615
  4. PARAMIDIN [Concomitant]
     Indication: THERAPEUTIC RESPONSE INCREASED
     Dosage: 300 MG, QD
     Route: 048
     Dates: start: 20090624
  5. PARIET [Concomitant]
     Indication: GASTROOESOPHAGEAL REFLUX DISEASE
     Dosage: 10 MG, QD
     Route: 048
     Dates: start: 20081226
  6. WARFARIN [Concomitant]
     Indication: THROMBOSIS PROPHYLAXIS
     Dosage: 1 MG, QD
     Route: 048
     Dates: start: 20090401

REACTIONS (2)
  - Uveitis [Recovering/Resolving]
  - Vitreous opacities [Recovering/Resolving]
